FAERS Safety Report 9912849 (Version 1)
Quarter: 2014Q1

REPORT INFORMATION
  Report Type: Spontaneous
  Country: PT (occurrence: None)
  Receive Date: 20140212
  Receipt Date: 20140212
  Transmission Date: 20141002
  Serious: Yes (Other)
  Sender: FDA-Public Use
  Company Number: 2167078

PATIENT
  Age: 40 Year
  Sex: Female
  Weight: 62 kg

DRUGS (1)
  1. (DOCETAXEL) [Suspect]
     Indication: BREAST CANCER
     Dosage: 7.619 MG/DAY, INTRAVENOUS (NOT OTHERWISE SPECIFIED)
     Dates: start: 20140110, end: 20140110

REACTIONS (3)
  - Anaphylactic reaction [None]
  - Erythema [None]
  - Feeling hot [None]
